FAERS Safety Report 9515559 (Version 2)
Quarter: 2013Q3

REPORT INFORMATION
  Report Type: Report from Study
  Country: AR (occurrence: AR)
  Receive Date: 20130911
  Receipt Date: 20130911
  Transmission Date: 20140515
  Serious: Yes (Hospitalization, Other)
  Sender: FDA-Public Use
  Company Number: PHHO2011AR018751

PATIENT
  Age: 65 Year
  Sex: Male
  Weight: 168 kg

DRUGS (7)
  1. PLACEBO [Suspect]
     Indication: CORONARY ARTERY DISEASE
     Dosage: CODE NOT BROKEN
     Route: 048
     Dates: start: 20100603
  2. ALISKIREN [Suspect]
     Indication: CORONARY ARTERY DISEASE
     Dosage: 150 MG, UNK
     Route: 048
  3. ASPIRIN [Concomitant]
     Indication: ANTIPLATELET THERAPY
     Dosage: 100 MG, QD
     Route: 048
     Dates: start: 20040601, end: 20111106
  4. ALPRAZOLAM [Concomitant]
     Dosage: 0.50 MG, QD
     Route: 048
     Dates: start: 20100330, end: 20111106
  5. ATENOLOL [Concomitant]
     Dosage: 12.5 MG, BID
     Route: 048
     Dates: start: 20100601, end: 20111106
  6. ROSUVASTATIN [Concomitant]
     Indication: DYSLIPIDAEMIA
     Dosage: 20 MG, QD
     Route: 048
     Dates: start: 20100513, end: 20111106
  7. OMEPRAZOL [Concomitant]
     Indication: PROPHYLAXIS
     Dosage: 20 MG, QD
     Route: 048
     Dates: start: 20100415, end: 20111106

REACTIONS (1)
  - Cholelithiasis [Recovered/Resolved]
